FAERS Safety Report 14616195 (Version 6)
Quarter: 2019Q3

REPORT INFORMATION
  Report Type: Spontaneous
  Country: FR (occurrence: FR)
  Receive Date: 20180309
  Receipt Date: 20190808
  Transmission Date: 20191004
  Serious: Yes (Other)
  Sender: FDA-Public Use
  Company Number: FR-MERCK KGAA-2043403

PATIENT
  Age: 59 Year
  Sex: Female
  Weight: 50 kg

DRUGS (8)
  1. SERTRALINE [Suspect]
     Active Substance: SERTRALINE HYDROCHLORIDE
  2. NOCTAMIDE [Suspect]
     Active Substance: LORMETAZEPAM
  3. EUTHYROX [Suspect]
     Active Substance: LEVOTHYROXINE SODIUM
     Dates: start: 20170717
  4. EUTHYROX [Suspect]
     Active Substance: LEVOTHYROXINE SODIUM
     Dates: start: 20171004, end: 201806
  5. EUTHYROX [Suspect]
     Active Substance: LEVOTHYROXINE SODIUM
     Indication: HYPOTHYROIDISM
     Dates: start: 201703
  6. DOLIPRANE [Concomitant]
     Active Substance: ACETAMINOPHEN
  7. OESTRODOSE [Suspect]
     Active Substance: ESTRADIOL
  8. PROGESTAN [Suspect]
     Active Substance: PROGESTERONE

REACTIONS (46)
  - Arthralgia [Not Recovered/Not Resolved]
  - Feeling of body temperature change [None]
  - Dizziness [None]
  - Sleep disorder [Not Recovered/Not Resolved]
  - Hot flush [Not Recovered/Not Resolved]
  - Disturbance in attention [None]
  - Decreased appetite [Recovered/Resolved]
  - Anger [None]
  - Gait disturbance [None]
  - Skin discolouration [None]
  - Dark circles under eyes [None]
  - Apathy [None]
  - Dyspnoea [None]
  - Nervousness [None]
  - Depression [None]
  - Gastrointestinal disorder [None]
  - Nausea [Not Recovered/Not Resolved]
  - Dysstasia [None]
  - Pallor [None]
  - Gamma-glutamyltransferase increased [None]
  - Blood thyroid stimulating hormone increased [None]
  - Agitation [None]
  - Abdominal pain [Not Recovered/Not Resolved]
  - Fatigue [Not Recovered/Not Resolved]
  - Migraine [Not Recovered/Not Resolved]
  - Pain [Not Recovered/Not Resolved]
  - Rheumatic disorder [None]
  - Affect lability [None]
  - Irritability [None]
  - Weight decreased [Recovering/Resolving]
  - Blood thyroid stimulating hormone decreased [None]
  - Asthenia [Recovering/Resolving]
  - Alopecia [Not Recovered/Not Resolved]
  - Eye irritation [None]
  - General physical health deterioration [Recovering/Resolving]
  - Impatience [None]
  - Abnormal behaviour [None]
  - Vertigo [None]
  - Decreased interest [None]
  - Crying [None]
  - Mental impairment [None]
  - Balance disorder [None]
  - Impaired work ability [None]
  - Muscle spasms [None]
  - Headache [Not Recovered/Not Resolved]
  - Diarrhoea [Not Recovered/Not Resolved]

NARRATIVE: CASE EVENT DATE: 2017
